FAERS Safety Report 24136542 (Version 1)
Quarter: 2024Q3

REPORT INFORMATION
  Report Type: Report from Study
  Country: BE (occurrence: BE)
  Receive Date: 20240725
  Receipt Date: 20240725
  Transmission Date: 20241016
  Serious: Yes (Other)
  Sender: CSL BEHRING
  Company Number: BE-BEH-2024175906

PATIENT
  Sex: Female

DRUGS (1)
  1. HIZENTRA [Suspect]
     Active Substance: HUMAN IMMUNOGLOBULIN G
     Indication: Primary immunodeficiency syndrome
     Dosage: 4 G, QW
     Route: 058
     Dates: start: 20230515, end: 20240630

REACTIONS (4)
  - Abortion spontaneous [Unknown]
  - Ectopic pregnancy [Unknown]
  - Human chorionic gonadotropin increased [Unknown]
  - Maternal exposure during pregnancy [Unknown]
